FAERS Safety Report 4505909-6 (Version None)
Quarter: 2004Q4

REPORT INFORMATION
  Report Type: 
  Country: None (occurrence: None)
  Receive Date: 20041025
  Receipt Date: 20040521
  Transmission Date: 20050328
  Serious: Yes (Other)
  Sender: FDA-Public Use
  Company Number: US-JNJFOC-20040104570

PATIENT
  Age: 68 Year
  Sex: Male
  Weight: 63.5036 kg

DRUGS (10)
  1. REMICADE [Suspect]
     Indication: RHEUMATOID ARTHRITIS
     Dosage: 200 MG, 1 IN 1 DAY, INTRAVENOUS; SEE IMAGE
     Route: 042
     Dates: start: 20011101, end: 20011101
  2. PREDNISONE [Concomitant]
  3. NPH PURIFIED PORK ISOPHANE INSULIN [Concomitant]
  4. ZESTRIL [Concomitant]
  5. PRILOSEC [Concomitant]
  6. IRON (IRON) [Concomitant]
  7. FOSAMAX [Concomitant]
  8. FOLIC ACID [Concomitant]
  9. CENTRUM SILVER (CENTRUM SILVER) [Concomitant]
  10. METHOTREXATE [Concomitant]

REACTIONS (4)
  - HYPERSENSITIVITY [None]
  - RENAL IMPAIRMENT [None]
  - TRANSAMINASES INCREASED [None]
  - UPPER RESPIRATORY TRACT INFECTION [None]
